FAERS Safety Report 7081562-5 (Version None)
Quarter: 2010Q4

REPORT INFORMATION
  Report Type: 
  Country: None (occurrence: None)
  Receive Date: 20101102
  Receipt Date: 20101102
  Transmission Date: 20110411
  Serious: Yes (Life-Threatening)
  Sender: FDA-Public Use
  Company Number: None

PATIENT
  Age: 60 Year
  Sex: Male
  Weight: 150 kg

DRUGS (1)
  1. ASPIRIN [Suspect]
     Indication: DIABETES MELLITUS
     Dates: start: 20101020, end: 20101020

REACTIONS (1)
  - ANGIOEDEMA [None]
